FAERS Safety Report 4995060-3 (Version None)
Quarter: 2006Q2

REPORT INFORMATION
  Report Type: 
  Country: None (occurrence: None)
  Receive Date: 20060508
  Receipt Date: 20060426
  Transmission Date: 20061013
  Serious: Yes (Hospitalization)
  Sender: FDA-Public Use
  Company Number: FR-AVENTIS-200611600FR

PATIENT
  Age: 75 Year
  Sex: Male
  Weight: 83 kg

DRUGS (16)
  1. RIFADIN [Suspect]
     Indication: ARTHRODESIS
     Route: 042
     Dates: start: 20060302, end: 20060304
  2. RIFADIN [Suspect]
     Indication: SUPERINFECTION
     Route: 042
     Dates: start: 20060302, end: 20060304
  3. RIFADIN [Suspect]
     Route: 048
     Dates: start: 20060305, end: 20060308
  4. FUCIDINE CAP [Suspect]
     Indication: ARTHRODESIS
     Route: 042
     Dates: start: 20060302, end: 20060304
  5. FUCIDINE CAP [Suspect]
     Indication: SUPERINFECTION
     Route: 042
     Dates: start: 20060302, end: 20060304
  6. FUCIDINE CAP [Suspect]
     Route: 048
     Dates: start: 20060305, end: 20060308
  7. VANCOMYCIN [Suspect]
     Indication: ARTHRODESIS
     Route: 042
     Dates: start: 20060302, end: 20060309
  8. VANCOMYCIN [Suspect]
     Indication: SUPERINFECTION
     Route: 042
     Dates: start: 20060302, end: 20060309
  9. ALLOPURINOL [Concomitant]
     Indication: DRUG USE FOR UNKNOWN INDICATION
     Route: 048
     Dates: end: 20060309
  10. ATARAX [Concomitant]
     Indication: DRUG USE FOR UNKNOWN INDICATION
     Route: 048
     Dates: end: 20060309
  11. ATACAND [Concomitant]
     Indication: DRUG USE FOR UNKNOWN INDICATION
     Route: 048
     Dates: end: 20060309
  12. LASILIX [Concomitant]
     Indication: DRUG USE FOR UNKNOWN INDICATION
     Route: 048
     Dates: end: 20060309
  13. LEXOMIL [Concomitant]
     Indication: DRUG USE FOR UNKNOWN INDICATION
     Route: 048
     Dates: end: 20060309
  14. SERESTA [Concomitant]
     Indication: DRUG USE FOR UNKNOWN INDICATION
     Route: 048
     Dates: end: 20060309
  15. MOPRAL [Concomitant]
     Indication: DRUG USE FOR UNKNOWN INDICATION
     Route: 048
     Dates: end: 20060309
  16. CORTANCYL [Concomitant]
     Indication: IDIOPATHIC THROMBOCYTOPENIC PURPURA
     Route: 048
     Dates: start: 20050701, end: 20060309

REACTIONS (8)
  - BLOOD ALKALINE PHOSPHATASE INCREASED [None]
  - CHOLESTASIS [None]
  - CONJUNCTIVITIS [None]
  - GALLBLADDER DISORDER [None]
  - GAMMA-GLUTAMYLTRANSFERASE INCREASED [None]
  - JAUNDICE [None]
  - LINEAR IGA DISEASE [None]
  - RENAL FAILURE ACUTE [None]
